FAERS Safety Report 11040778 (Version 2)
Quarter: 2015Q2

REPORT INFORMATION
  Report Type: Spontaneous
  Country: US (occurrence: US)
  Receive Date: 20150416
  Receipt Date: 20150525
  Transmission Date: 20150821
  Serious: No
  Sender: FDA-Public Use
  Company Number: US-JNJFOC-20131015859

PATIENT
  Age: 59 Year
  Sex: Male
  Weight: 99.79 kg

DRUGS (10)
  1. CARVEDILOL. [Concomitant]
     Active Substance: CARVEDILOL
     Indication: CARDIAC DISORDER
     Route: 048
     Dates: start: 2003
  2. VENTOLIN [Concomitant]
     Active Substance: ALBUTEROL SULFATE
     Indication: ASTHMA
     Route: 065
  3. LOSARTAN [Concomitant]
     Active Substance: LOSARTAN
     Indication: BLOOD PRESSURE
     Route: 048
     Dates: start: 2012
  4. ZETIA [Concomitant]
     Active Substance: EZETIMIBE
     Indication: BLOOD CHOLESTEROL
     Route: 048
     Dates: start: 2004
  5. ASPIRIN. [Concomitant]
     Active Substance: ASPIRIN
     Indication: CARDIAC DISORDER
     Route: 048
     Dates: start: 2003
  6. FOLIC ACID. [Concomitant]
     Active Substance: FOLIC ACID
     Indication: FACTOR V DEFICIENCY
     Route: 048
     Dates: start: 2004
  7. SIMVASTATIN. [Concomitant]
     Active Substance: SIMVASTATIN
     Indication: BLOOD CHOLESTEROL DECREASED
     Route: 048
     Dates: start: 2004
  8. SPIRONOLACTONE. [Concomitant]
     Active Substance: SPIRONOLACTONE
     Indication: DIURETIC THERAPY
     Route: 048
     Dates: start: 2008
  9. XARELTO [Suspect]
     Active Substance: RIVAROXABAN
     Indication: DEEP VEIN THROMBOSIS
     Route: 048
     Dates: start: 201309
  10. FOLIC ACID. [Concomitant]
     Active Substance: FOLIC ACID
     Indication: METHYLENETETRAHYDROFOLATE REDUCTASE DEFICIENCY
     Route: 048
     Dates: start: 2004

REACTIONS (1)
  - Alopecia [Not Recovered/Not Resolved]

NARRATIVE: CASE EVENT DATE: 201310
